FAERS Safety Report 24224267 (Version 1)
Quarter: 2024Q3

REPORT INFORMATION
  Report Type: Spontaneous
  Country: US (occurrence: None)
  Receive Date: 20240818
  Receipt Date: 20240818
  Transmission Date: 20241016
  Serious: Yes (Disabling)
  Sender: Public
  Company Number: None

PATIENT
  Age: 72 Year
  Sex: Female
  Weight: 67.5 kg

DRUGS (11)
  1. RECLAST [Suspect]
     Active Substance: ZOLEDRONIC ACID
     Indication: Osteoporosis
     Dates: start: 20230515
  2. LISINOPRIL [Concomitant]
  3. DEXILANT [Concomitant]
  4. ELIQUIS [Concomitant]
     Active Substance: APIXABAN
  5. FIORICET [Concomitant]
  6. ROBAXIN [Concomitant]
  7. ESTRADIOL TRANSDERMAL SYSTEM [Concomitant]
     Active Substance: ESTRADIOL
  8. VITAMIN D3 [Concomitant]
     Active Substance: CHOLECALCIFEROL
  9. MAGNESIUM [Concomitant]
  10. SELENIUM [Concomitant]
  11. MINERALS [Concomitant]
     Active Substance: MINERALS

REACTIONS (5)
  - Pain in extremity [None]
  - Arthralgia [None]
  - Arthralgia [None]
  - Pain in extremity [None]
  - Insomnia [None]

NARRATIVE: CASE EVENT DATE: 20240714
